FAERS Safety Report 6403318-6 (Version None)
Quarter: 2009Q4

REPORT INFORMATION
  Report Type: 
  Country: None (occurrence: None)
  Receive Date: 20091016
  Receipt Date: 20091009
  Transmission Date: 20100525
  Serious: Yes (Other)
  Sender: FDA-Public Use
  Company Number: FR-AMGEN-QUU368308

PATIENT
  Age: 63 Year
  Sex: Female

DRUGS (4)
  1. NEULASTA [Suspect]
     Indication: CHEMOTHERAPY
     Route: 065
  2. TAXOL [Concomitant]
  3. CISPLATIN [Concomitant]
  4. FLUOROURACIL [Concomitant]

REACTIONS (2)
  - ANGIOEDEMA [None]
  - OEDEMA [None]
